FAERS Safety Report 9032091 (Version 4)
Quarter: 2013Q3

REPORT INFORMATION
  Report Type: Report from Study
  Country: TW (occurrence: TW)
  Receive Date: 20130122
  Receipt Date: 20130904
  Transmission Date: 20140515
  Serious: Yes (Other)
  Sender: FDA-Public Use
  Company Number: PHHY2013TW005800

PATIENT
  Age: 64 Year
  Sex: Female
  Weight: 48 kg

DRUGS (7)
  1. ACLASTA/ZOLEDRONATE [Suspect]
     Indication: OSTEOPOROSIS
     Dosage: 5 MG, 5MG/100ML/BOTTLE
     Route: 042
     Dates: start: 20110330
  2. ACLASTA/ZOLEDRONATE [Suspect]
     Dosage: 5 MG, UNK
     Route: 042
     Dates: start: 20120329
  3. CELECOXIB [Concomitant]
     Indication: RHEUMATOID ARTHRITIS
     Dosage: UNK UKN, UNK
     Dates: start: 20090708
  4. ACIFOL//FOLIC ACID [Concomitant]
     Indication: PROPHYLAXIS
     Dosage: UNK UKN, UNK
     Dates: start: 20051012
  5. METHOTREXATE [Concomitant]
     Indication: RHEUMATOID ARTHRITIS
     Dosage: UNK UKN, UNK
     Dates: start: 20051012
  6. METHYLPREDNISOLONE [Concomitant]
     Indication: RHEUMATOID ARTHRITIS
     Dosage: UNK UKN, UNK
     Dates: start: 20010419
  7. ZOLPIDEM [Concomitant]
     Indication: SLEEP DISORDER
     Dosage: UNK UKN, UNK
     Dates: start: 20091028

REACTIONS (6)
  - Osteonecrosis of jaw [Recovering/Resolving]
  - Alveolar osteitis [Recovered/Resolved]
  - Gingivitis [Unknown]
  - Exposed bone in jaw [Unknown]
  - Dental caries [Not Recovered/Not Resolved]
  - Periodontitis [Not Recovered/Not Resolved]
